FAERS Safety Report 11165795 (Version 2)
Quarter: 2015Q2

REPORT INFORMATION
  Report Type: Spontaneous
  Country: FI (occurrence: FI)
  Receive Date: 20150604
  Receipt Date: 20150609
  Transmission Date: 20150821
  Serious: Yes (Hospitalization, Other)
  Sender: FDA-Public Use
  Company Number: FI-ABBVIE-13P-055-1178715-00

PATIENT
  Age: 74 Year
  Sex: Male

DRUGS (2)
  1. DUODOPA [Suspect]
     Active Substance: CARBIDOPA\LEVODOPA
     Indication: PARKINSON^S DISEASE
     Dosage: MORNING DOSE 8.8; CONTINUOUS INFUSION 5.7; EXTRA DOSE 2.2
     Route: 050
  2. DUODOPA [Suspect]
     Active Substance: CARBIDOPA\LEVODOPA
     Dosage: MD:6.7ML, CD 5ML, NIGHT DOSE 3.5ML, NO ED
     Route: 050

REACTIONS (15)
  - Incorrect route of drug administration [Unknown]
  - Feeling abnormal [Unknown]
  - Device dislocation [Unknown]
  - Cerebral haemorrhage [Not Recovered/Not Resolved]
  - General physical health deterioration [Not Recovered/Not Resolved]
  - Cerebral haemorrhage [Recovering/Resolving]
  - Fatigue [Not Recovered/Not Resolved]
  - Incorrect dose administered [Unknown]
  - Muscle spasms [Unknown]
  - Incorrect route of drug administration [Unknown]
  - Device occlusion [Unknown]
  - Fatigue [Recovering/Resolving]
  - Fall [Not Recovered/Not Resolved]
  - Device issue [Unknown]
  - Device alarm issue [Unknown]

NARRATIVE: CASE EVENT DATE: 2013
